FAERS Safety Report 16114625 (Version 2)
Quarter: 2019Q2

REPORT INFORMATION
  Report Type: Spontaneous
  Country: US (occurrence: US)
  Receive Date: 20190325
  Receipt Date: 20190612
  Transmission Date: 20190711
  Serious: No
  Sender: FDA-Public Use
  Company Number: US-BIOGEN-2019BI00713780

PATIENT
  Age: 56 Year
  Sex: Female

DRUGS (1)
  1. AVONEX [Suspect]
     Active Substance: INTERFERON BETA-1A
     Indication: PRODUCT USED FOR UNKNOWN INDICATION
     Route: 030
     Dates: start: 201903, end: 201903

REACTIONS (5)
  - Sinusitis [Unknown]
  - Ear infection [Unknown]
  - Candida infection [Unknown]
  - Visual impairment [Unknown]
  - Bronchitis [Unknown]

NARRATIVE: CASE EVENT DATE: 20190306
